FAERS Safety Report 13586981 (Version 1)
Quarter: 2017Q2

REPORT INFORMATION
  Report Type: Spontaneous
  Country: US (occurrence: US)
  Receive Date: 20170526
  Receipt Date: 20170526
  Transmission Date: 20170830
  Serious: No
  Sender: FDA-Public Use
  Company Number: US-ROCHE-632950

PATIENT
  Age: 67 Year
  Sex: Female

DRUGS (1)
  1. VALCYTE [Suspect]
     Active Substance: VALGANCICLOVIR HYDROCHLORIDE
     Indication: CHRONIC FATIGUE SYNDROME
     Route: 065
     Dates: start: 200810, end: 20090509

REACTIONS (1)
  - Adverse reaction [Not Recovered/Not Resolved]
